FAERS Safety Report 9461603 (Version 3)
Quarter: 2013Q3

REPORT INFORMATION
  Report Type: Spontaneous
  Country: US (occurrence: US)
  Receive Date: 20130816
  Receipt Date: 20130923
  Transmission Date: 20140515
  Serious: Yes (Other)
  Sender: FDA-Public Use
  Company Number: US-PFIZER INC-2013236592

PATIENT
  Sex: 0

DRUGS (3)
  1. LYRICA [Suspect]
     Dosage: UNK
  2. SKELAXIN [Suspect]
     Dosage: UNK
  3. ACETAMINOPHEN [Concomitant]
     Dosage: UNK

REACTIONS (4)
  - Anaemia [Unknown]
  - Cataract [Unknown]
  - Dry eye [Unknown]
  - Asthenopia [Unknown]
